FAERS Safety Report 16573317 (Version 1)
Quarter: 2019Q3

REPORT INFORMATION
  Report Type: Spontaneous
  Country: CZ (occurrence: CZ)
  Receive Date: 20190715
  Receipt Date: 20190715
  Transmission Date: 20191004
  Serious: Yes (Hospitalization, Other)
  Sender: FDA-Public Use
  Company Number: CZ-AVION PHARMACEUTICALS, LLC-2070830

PATIENT
  Age: 52 Year
  Sex: Female

DRUGS (1)
  1. BALCOLTRA [Suspect]
     Active Substance: ETHINYL ESTRADIOL\LEVONORGESTREL
     Indication: CONTRACEPTION
     Route: 015

REACTIONS (1)
  - Endometrial adenocarcinoma [Recovered/Resolved]
